FAERS Safety Report 13421761 (Version 1)
Quarter: 2017Q2

REPORT INFORMATION
  Report Type: Spontaneous
  Country: TR (occurrence: TR)
  Receive Date: 20170410
  Receipt Date: 20170410
  Transmission Date: 20170830
  Serious: Yes (Life-Threatening, Other)
  Sender: FDA-Public Use
  Company Number: TR-LUPIN PHARMACEUTICALS INC.-2017-01666

PATIENT
  Age: 16 Day
  Sex: Female
  Weight: 1.38 kg

DRUGS (4)
  1. VANCOMYCIN [Suspect]
     Active Substance: VANCOMYCIN
     Indication: NECROTISING ENTEROCOLITIS NEONATAL
  2. VANCOMYCIN [Suspect]
     Active Substance: VANCOMYCIN
     Indication: SEPSIS NEONATAL
     Dosage: 138 MG, PER DOSE (EVERY 8 HOURS)
     Route: 042
  3. PIPERACILLIN AND TAZOBACTAM [Concomitant]
     Active Substance: PIPERACILLIN SODIUM\TAZOBACTAM SODIUM
     Indication: NECROTISING ENTEROCOLITIS NEONATAL
  4. PIPERACILLIN AND TAZOBACTAM [Concomitant]
     Active Substance: PIPERACILLIN SODIUM\TAZOBACTAM SODIUM
     Indication: SEPSIS NEONATAL
     Dosage: 50 MG/KG, BID
     Route: 042

REACTIONS (3)
  - Toxicity to various agents [Recovered/Resolved]
  - Infantile apnoea [Recovered/Resolved]
  - Accidental overdose [Unknown]
